FAERS Safety Report 8910515 (Version 1)
Quarter: 2012Q4

REPORT INFORMATION
  Report Type: 
  Country: CA (occurrence: CA)
  Receive Date: 20121114
  Receipt Date: 20121114
  Transmission Date: 20130627
  Serious: No
  Sender: FDA-Public Use
  Company Number: CA-TEVA-368397USA

PATIENT
  Sex: Female

DRUGS (1)
  1. PLAN B [Suspect]
     Indication: CONTRACEPTION
     Dosage: 2 pills (2 x 0.75mg)
     Route: 048
     Dates: start: 20121028, end: 20121028

REACTIONS (1)
  - Vaginal haemorrhage [Not Recovered/Not Resolved]
